FAERS Safety Report 25603669 (Version 1)
Quarter: 2025Q3

REPORT INFORMATION
  Report Type: Spontaneous
  Country: US (occurrence: US)
  Receive Date: 20250725
  Receipt Date: 20250725
  Transmission Date: 20251021
  Serious: No
  Sender: SANOFI AVENTIS
  Company Number: US-SA-2025SA209693

PATIENT
  Sex: Male
  Weight: 17.55 kg

DRUGS (8)
  1. DUPIXENT [Suspect]
     Active Substance: DUPILUMAB
     Dosage: 300 MG, Q4W
     Route: 058
  2. DEXTROAMPHETAMINE [Concomitant]
     Active Substance: DEXTROAMPHETAMINE
  3. AMPHETAMINE [Concomitant]
     Active Substance: AMPHETAMINE
  4. VALACYCLOVIR [Concomitant]
     Active Substance: VALACYCLOVIR HYDROCHLORIDE
  5. FLUOCINONIDE [Concomitant]
     Active Substance: FLUOCINONIDE
  6. MELOXICAM [Concomitant]
     Active Substance: MELOXICAM
  7. OSELTAMIVIR PHOSPHATE [Concomitant]
     Active Substance: OSELTAMIVIR PHOSPHATE
  8. BENZONATATE [Concomitant]
     Active Substance: BENZONATATE

REACTIONS (2)
  - Condition aggravated [Unknown]
  - Off label use [Unknown]
